FAERS Safety Report 6536630-0 (Version None)
Quarter: 2010Q1

REPORT INFORMATION
  Report Type: 
  Country: None (occurrence: None)
  Receive Date: 20100113
  Receipt Date: 20100106
  Transmission Date: 20100710
  Serious: Yes (Death, Other)
  Sender: FDA-Public Use
  Company Number: US-PFIZER INC-2009277071

PATIENT
  Age: 59 Year
  Sex: Female
  Weight: 104.4 kg

DRUGS (25)
  1. ZYVOX [Suspect]
     Indication: ENTEROCOCCAL INFECTION
     Dosage: 600 MG, 2X/DAY
     Route: 048
     Dates: start: 20090918, end: 20090927
  2. SERTRALINE HCL [Interacting]
     Indication: DEPRESSION
     Dosage: 50 MG, SINGLE
     Route: 048
     Dates: start: 20090928
  3. SPIRONOLACTONE [Concomitant]
     Dosage: 50 MG, 1X/DAY
     Route: 048
     Dates: start: 20090910, end: 20090922
  4. FUROSEMIDE [Concomitant]
     Dosage: 20 MG, UNK
     Route: 048
     Dates: start: 20090910, end: 20090910
  5. FUROSEMIDE [Concomitant]
     Dosage: 20 MG, UNK
     Route: 042
     Dates: start: 20090911, end: 20090911
  6. FUROSEMIDE [Concomitant]
     Dosage: 20 MG, UNK
     Route: 048
     Dates: start: 20090912, end: 20090915
  7. FUROSEMIDE [Concomitant]
     Dosage: 40 MG, UNK
     Route: 042
     Dates: start: 20090915, end: 20090915
  8. FUROSEMIDE [Concomitant]
     Dosage: 40 MG, UNK
     Route: 048
     Dates: start: 20090916, end: 20090917
  9. FUROSEMIDE [Concomitant]
     Dosage: 40 MG, 3X/DAY
     Route: 042
     Dates: start: 20090918, end: 20090921
  10. LACTULOSE [Concomitant]
     Dosage: 20 MG, 3X/DAY
     Route: 048
     Dates: start: 20090911, end: 20090928
  11. PROPRANOLOL [Concomitant]
     Dosage: 40 MG, 2X/DAY
     Route: 048
  12. PANTOPRAZOLE [Concomitant]
     Dosage: 40 MG, 1X/DAY
     Route: 048
  13. METOCLOPRAMIDE [Concomitant]
     Dosage: 10 MG, 3X/DAY
     Route: 048
  14. MS CONTIN [Concomitant]
     Dosage: 30 MG, 2X/DAY
     Route: 048
     Dates: start: 20090910, end: 20090916
  15. MS CONTIN [Concomitant]
     Dosage: 45 MG, 2X/DAY
     Route: 048
     Dates: start: 20090928, end: 20090928
  16. TRAMADOL [Concomitant]
     Dosage: 50 MG, UNK
  17. SENOKOT [Concomitant]
     Dosage: 2 TAB DAILY
     Route: 048
     Dates: start: 20090910, end: 20090930
  18. FOLIC ACID [Concomitant]
     Dosage: 1 MG, 1X/DAY
     Route: 048
     Dates: start: 20090910, end: 20090930
  19. THIAMINE [Concomitant]
     Dosage: 100 MG, 1X/DAY
     Route: 048
     Dates: start: 20090910, end: 20090930
  20. POTASSIUM CHLORIDE [Concomitant]
     Dosage: 20 MEQ, UNK
     Dates: start: 20090910, end: 20090910
  21. POTASSIUM CHLORIDE [Concomitant]
     Dosage: 80 MEQ, UNK
     Route: 048
     Dates: start: 20090911, end: 20090911
  22. POTASSIUM CHLORIDE [Concomitant]
     Dosage: 40 MEQ, UNK
     Route: 048
     Dates: start: 20090914, end: 20090914
  23. POTASSIUM CHLORIDE [Concomitant]
     Dosage: 40 MEQ, UNK
     Route: 048
     Dates: start: 20090917, end: 20090918
  24. MULTI-VITAMINS [Concomitant]
  25. ACETYLSALICYLIC ACID [Concomitant]
     Dosage: 81 MG, UNK
     Dates: start: 20090910, end: 20090913

REACTIONS (2)
  - DRUG INTERACTION [None]
  - SEROTONIN SYNDROME [None]
